FAERS Safety Report 8462006-5 (Version None)
Quarter: 2012Q2

REPORT INFORMATION
  Report Type: 
  Country: None (occurrence: None)
  Receive Date: 20120625
  Receipt Date: 20120615
  Transmission Date: 20120825
  Serious: Yes (Hospitalization)
  Sender: FDA-Public Use
  Company Number: CA-JNJFOC-20120607961

PATIENT
  Sex: Male
  Weight: 120 kg

DRUGS (17)
  1. SYNTHROID [Concomitant]
     Route: 048
  2. NAPROXEN [Concomitant]
     Dosage: 500 (UNITS UNSPECIFIED)
     Route: 065
  3. NPH INSULIN [Concomitant]
     Dosage: 20 UNITS
     Route: 065
  4. CITALOPRAM HYDROBROMIDE [Concomitant]
     Dosage: 500 (UNITS UNSPECIFIED)
     Route: 065
  5. METFORMIN HCL [Concomitant]
     Route: 048
  6. SENNOSIDE [Concomitant]
     Dosage: AS NEEDED
     Route: 048
  7. MESALAMINE [Concomitant]
     Route: 048
  8. NOVORAPID [Concomitant]
     Dosage: 20 UNITS
     Route: 065
  9. MAGLUCATE [Concomitant]
     Dosage: 20 UNITS
     Route: 065
  10. VITAMIN D [Concomitant]
     Dosage: 20 UNITS
     Route: 065
  11. GAVISCON [Concomitant]
     Dosage: 20 UNITS
     Route: 065
  12. REMICADE [Suspect]
     Indication: CROHN'S DISEASE
     Route: 042
     Dates: start: 20100512
  13. LIPITOR [Concomitant]
     Dosage: 500 (UNITS UNSPECIFIED)
     Route: 065
  14. DILAUDID [Concomitant]
     Dosage: 500 (UNITS UNSPECIFIED)
     Route: 048
  15. PLAVIX [Concomitant]
     Dosage: 500 (UNITS UNSPECIFIED)
     Route: 065
  16. PANTOPRAZOLE SODIUM [Suspect]
     Indication: PRODUCT USED FOR UNKNOWN INDICATION
     Route: 048
  17. COLACE [Concomitant]
     Route: 048

REACTIONS (2)
  - GASTROOESOPHAGEAL REFLUX DISEASE [None]
  - RASH [None]
